FAERS Safety Report 24432176 (Version 2)
Quarter: 2024Q4

REPORT INFORMATION
  Report Type: Spontaneous
  Country: AU (occurrence: AU)
  Receive Date: 20241014
  Receipt Date: 20241203
  Transmission Date: 20250114
  Serious: Yes (Other)
  Sender: CELLTRION
  Company Number: AU-PFIZER INC-PV202400129139

PATIENT

DRUGS (8)
  1. INFLIXIMAB [Suspect]
     Active Substance: INFLIXIMAB
     Indication: Crohn^s disease
     Dosage: 10 MG/KG INDUCTION
     Dates: start: 202304
  2. INFLIXIMAB [Suspect]
     Active Substance: INFLIXIMAB
     Dosage: 10 MG/KG Q6 WKLY
     Dates: start: 202404
  3. METHOTREXATE SODIUM [Concomitant]
     Active Substance: METHOTREXATE SODIUM
     Dosage: UNK
  4. MESALAMINE [Concomitant]
     Active Substance: MESALAMINE
     Dosage: 1G SUPPS MANE
  5. MESALAMINE [Concomitant]
     Active Substance: MESALAMINE
     Dosage: 1G SUPPS MANE
  6. FOLIC ACID [Concomitant]
     Active Substance: FOLIC ACID
     Dosage: FRIDAY
  7. LOPERAMIDE [Concomitant]
     Active Substance: LOPERAMIDE
     Dosage: UNK, DAILY (8-10 CAPSULES A DAY)
  8. RIFAXIMIN [Concomitant]
     Active Substance: RIFAXIMIN
     Dosage: UNK, 2X/DAY (BD FOR 4 WEEKS)

REACTIONS (2)
  - Anal fistula [Unknown]
  - Condition aggravated [Unknown]
